FAERS Safety Report 9311362 (Version 1)
Quarter: 2013Q2

REPORT INFORMATION
  Report Type: Spontaneous
  Country: US (occurrence: US)
  Receive Date: 20130528
  Receipt Date: 20130528
  Transmission Date: 20140414
  Serious: Yes (Other)
  Sender: FDA-Public Use
  Company Number: US-BAYER-2013-064312

PATIENT
  Age: 17 Year
  Sex: Female
  Weight: 57 kg

DRUGS (3)
  1. ALEVE GELCAPS [Suspect]
     Indication: HEADACHE
     Dosage: 13 DF, ONCE
     Route: 048
  2. KLONOPIN [Concomitant]
  3. ADDERALL [Concomitant]

REACTIONS (2)
  - Incorrect dose administered [None]
  - Tearfulness [Not Recovered/Not Resolved]
